FAERS Safety Report 13331258 (Version 1)
Quarter: 2017Q1

REPORT INFORMATION
  Report Type: Spontaneous
  Country: US (occurrence: US)
  Receive Date: 20170314
  Receipt Date: 20170314
  Transmission Date: 20170428
  Serious: Yes (Hospitalization, Other)
  Sender: FDA-Public Use
  Company Number: US-ZYDUS-014063

PATIENT
  Age: 18 Year
  Sex: Male
  Weight: 58 kg

DRUGS (2)
  1. OMEPRAZOLE. [Suspect]
     Active Substance: OMEPRAZOLE
     Indication: GASTRITIS
     Route: 065
  2. ISOTRETINOIN [Interacting]
     Active Substance: ISOTRETINOIN
     Indication: ACNE
     Route: 065

REACTIONS (5)
  - Lethargy [Unknown]
  - Suicidal ideation [Unknown]
  - Depression [Unknown]
  - Drug interaction [Unknown]
  - Weight decreased [Unknown]
